FAERS Safety Report 13034583 (Version 1)
Quarter: 2016Q4

REPORT INFORMATION
  Report Type: Spontaneous
  Country: US (occurrence: US)
  Receive Date: 20161215
  Receipt Date: 20161215
  Transmission Date: 20170207
  Serious: No
  Sender: FDA-Public Use
  Company Number: None

PATIENT
  Age: 62 Year
  Sex: Female
  Weight: 90.35 kg

DRUGS (1)
  1. BUPROPION HCL SR TABS - 150MG [Suspect]
     Active Substance: BUPROPION HYDROCHLORIDE
     Indication: DEPRESSION
     Route: 048
     Dates: start: 201601

REACTIONS (2)
  - Tongue discomfort [None]
  - Product odour abnormal [None]

NARRATIVE: CASE EVENT DATE: 20160916
